FAERS Safety Report 4294231-1 (Version None)
Quarter: 2004Q1

REPORT INFORMATION
  Report Type: 
  Country: None (occurrence: None)
  Receive Date: 20040211
  Receipt Date: 20040122
  Transmission Date: 20041129
  Serious: Yes (Other)
  Sender: FDA-Public Use
  Company Number: US_990116222

PATIENT
  Age: 72 Year
  Sex: Male

DRUGS (4)
  1. HUMULIN 70/30 [Suspect]
     Dates: start: 19940101, end: 19990801
  2. PROTAMINE SULFATE [Suspect]
  3. HEPARIN [Concomitant]
  4. INSULIN [Concomitant]

REACTIONS (1)
  - ANAPHYLACTIC REACTION [None]
